FAERS Safety Report 15209799 (Version 1)
Quarter: 2018Q4

REPORT INFORMATION
  Report Type: Spontaneous
  Country: US (occurrence: US)
  Receive Date: 20180727
  Receipt Date: 20180727
  Transmission Date: 20190204
  Serious: No
  Sender: FDA-Public Use
  Company Number: US-LNK INTERNATIONAL, INC.-2052857

PATIENT
  Sex: Female

DRUGS (1)
  1. SINUS RELIEF MAXIMUM STRENGTH [Suspect]
     Active Substance: ACETAMINOPHEN\PHENYLEPHRINE HYDROCHLORIDE
     Indication: SINUS HEADACHE

REACTIONS (2)
  - Paranasal sinus discomfort [None]
  - Headache [None]
